FAERS Safety Report 14490995 (Version 3)
Quarter: 2018Q1

REPORT INFORMATION
  Report Type: Spontaneous
  Country: US (occurrence: US)
  Receive Date: 20180206
  Receipt Date: 20180319
  Transmission Date: 20180509
  Serious: Yes (Other)
  Sender: FDA-Public Use
  Company Number: US-PFIZER INC-2018049821

PATIENT
  Age: 58 Year
  Sex: Male
  Weight: 96.16 kg

DRUGS (1)
  1. XELJANZ XR [Suspect]
     Active Substance: TOFACITINIB CITRATE
     Indication: RHEUMATOID ARTHRITIS
     Dosage: 11 MG, 1X/DAY
     Route: 048

REACTIONS (7)
  - Laceration [Unknown]
  - Wound infection [Unknown]
  - Decreased immune responsiveness [Unknown]
  - Onychomycosis [Unknown]
  - Inflammation [Unknown]
  - Insomnia [Unknown]
  - Drug effect incomplete [Unknown]
